FAERS Safety Report 19018749 (Version 4)
Quarter: 2021Q2

REPORT INFORMATION
  Report Type: Report from Study
  Country: CO (occurrence: CO)
  Receive Date: 20210317
  Receipt Date: 20210602
  Transmission Date: 20210717
  Serious: Yes (Hospitalization, Other)
  Sender: FDA-Public Use
  Company Number: NVSC2021CO057084

PATIENT
  Age: 48 Year
  Sex: Female
  Weight: 77 kg

DRUGS (4)
  1. KISQALI [Suspect]
     Active Substance: RIBOCICLIB
     Dosage: 400 MG, QD
     Route: 048
     Dates: end: 20210430
  2. KISQALI [Suspect]
     Active Substance: RIBOCICLIB
     Indication: BREAST CANCER METASTATIC
     Dosage: 600 MG, QD
     Route: 048
     Dates: start: 202009
  3. FEMARA [Suspect]
     Active Substance: LETROZOLE
     Indication: BREAST CANCER
     Dosage: 2.5 MG, QD
     Route: 048
     Dates: start: 202009, end: 20210430
  4. OMEPRAZOLE. [Concomitant]
     Active Substance: OMEPRAZOLE
     Indication: GASTRITIS
     Dosage: 20 MG, QD (AT FASTING)
     Route: 048
     Dates: start: 20200320

REACTIONS (14)
  - Nausea [Not Recovered/Not Resolved]
  - Drug ineffective [Unknown]
  - Malaise [Unknown]
  - Pain in extremity [Recovered/Resolved with Sequelae]
  - Metastases to breast [Unknown]
  - Movement disorder [Unknown]
  - Burns third degree [Recovered/Resolved]
  - Erythema [Recovered/Resolved with Sequelae]
  - Breast injury [Recovered/Resolved]
  - Breast pain [Not Recovered/Not Resolved]
  - Blister [Recovered/Resolved]
  - Vomiting [Not Recovered/Not Resolved]
  - Inflammation [Recovered/Resolved with Sequelae]
  - Synovial cyst [Unknown]

NARRATIVE: CASE EVENT DATE: 202102
